FAERS Safety Report 15949475 (Version 1)
Quarter: 2019Q1

REPORT INFORMATION
  Report Type: Spontaneous
  Country: US (occurrence: US)
  Receive Date: 20190211
  Receipt Date: 20190211
  Transmission Date: 20190417
  Serious: No
  Sender: FDA-Public Use
  Company Number: US-PERRIGO-18US007347

PATIENT
  Age: 6 Year
  Sex: Female
  Weight: 16.78 kg

DRUGS (1)
  1. IBUPROFEN. [Suspect]
     Active Substance: IBUPROFEN
     Indication: PRODUCT USED FOR UNKNOWN INDICATION
     Dosage: 200 MG FIRST DOSE, 150 MG 30 TO 45 MINUTES LATER
     Route: 048
     Dates: start: 20180716, end: 20180716

REACTIONS (2)
  - Extra dose administered [Recovered/Resolved]
  - Incorrect dose administered [Unknown]

NARRATIVE: CASE EVENT DATE: 20180716
